FAERS Safety Report 5422908-0 (Version None)
Quarter: 2007Q3

REPORT INFORMATION
  Report Type: 
  Country: None (occurrence: None)
  Receive Date: 20070820
  Receipt Date: 20070807
  Transmission Date: 20080115
  Serious: Yes (Hospitalization)
  Sender: FDA-Public Use
  Company Number: 107#03#2007-02046

PATIENT
  Age: 16 Year
  Sex: Female

DRUGS (3)
  1. MIRTAZAPINE [Suspect]
     Indication: DEPRESSION
     Dosage: 30 MG (1 IN 1 D) ORAL; DOSE REDUCED ORAL
     Route: 048
     Dates: start: 20070101, end: 20070509
  2. MIRTAZAPINE [Suspect]
     Indication: DEPRESSION
     Dosage: 30 MG (1 IN 1 D) ORAL; DOSE REDUCED ORAL
     Route: 048
     Dates: start: 20070509
  3. LORAZEPAM [Concomitant]

REACTIONS (3)
  - DELUSION [None]
  - HALLUCINATION, AUDITORY [None]
  - SHARED PSYCHOTIC DISORDER [None]
